FAERS Safety Report 25960279 (Version 3)
Quarter: 2025Q4

REPORT INFORMATION
  Report Type: Report from Study
  Country: US (occurrence: US)
  Receive Date: 20251026
  Receipt Date: 20251121
  Transmission Date: 20260118
  Serious: Yes (Death, Hospitalization, Other)
  Sender: ABBVIE
  Company Number: US-ABBVIE-6517892

PATIENT
  Age: 65 Year
  Sex: Male
  Weight: 79 kg

DRUGS (11)
  1. LINZESS [Suspect]
     Active Substance: LINACLOTIDE
     Indication: Irritable bowel syndrome
     Route: 048
     Dates: start: 2022
  2. ATORVASTATIN [Concomitant]
     Active Substance: ATORVASTATIN
     Indication: Hypertension
  3. MONTELUKAST [Concomitant]
     Active Substance: MONTELUKAST
     Indication: Hypertension
  4. AMANTADINE [Concomitant]
     Active Substance: AMANTADINE
     Indication: Parkinson^s disease
  5. OMEPRAZOLE [Concomitant]
     Active Substance: OMEPRAZOLE
     Indication: Gastrooesophageal reflux disease
  6. FLONASE [Concomitant]
     Active Substance: FLUTICASONE PROPIONATE
     Indication: Multiple allergies
  7. MEMANTINE [Concomitant]
     Active Substance: MEMANTINE
     Indication: Parkinson^s disease
  8. CLONAZEPAM [Concomitant]
     Active Substance: CLONAZEPAM
     Indication: Parkinson^s disease
  9. LOSARTAN [Concomitant]
     Active Substance: LOSARTAN
     Indication: Hypertension
  10. NITROGLYCERIN [Concomitant]
     Active Substance: NITROGLYCERIN
     Indication: Cardiac disorder
  11. CETIRIZINE [Concomitant]
     Active Substance: CETIRIZINE HYDROCHLORIDE
     Indication: Multiple allergies

REACTIONS (7)
  - Coronary artery disease [Fatal]
  - Subdural haematoma [Fatal]
  - Balance disorder [Fatal]
  - Fall [Recovered/Resolved]
  - Parkinson^s disease [Fatal]
  - Loss of consciousness [Recovered/Resolved]
  - Mobility decreased [Fatal]

NARRATIVE: CASE EVENT DATE: 20220101
